FAERS Safety Report 5668894-X (Version None)
Quarter: 2008Q1

REPORT INFORMATION
  Report Type: 
  Country: None (occurrence: None)
  Receive Date: 20080317
  Receipt Date: 20080304
  Transmission Date: 20080703
  Serious: Yes (Death)
  Sender: FDA-Public Use
  Company Number: IT-BAYER-200814616GPV

PATIENT

DRUGS (4)
  1. SOTALOL [Suspect]
     Indication: NODAL ARRHYTHMIA
  2. ADENOSINE [Concomitant]
     Indication: NODAL ARRHYTHMIA
  3. DIGOXIN [Concomitant]
     Indication: NODAL ARRHYTHMIA
  4. FLECAINIDE ACETATE [Concomitant]
     Indication: NODAL ARRHYTHMIA

REACTIONS (1)
  - HYDROPS FOETALIS [None]
